FAERS Safety Report 24046024 (Version 2)
Quarter: 2025Q2

REPORT INFORMATION
  Report Type: Spontaneous
  Country: DK (occurrence: DK)
  Receive Date: 20240703
  Receipt Date: 20250515
  Transmission Date: 20250717
  Serious: Yes (Congenital Anomaly, Other)
  Sender: NOVARTIS
  Company Number: None

PATIENT
  Age: 1 Day
  Sex: Male

DRUGS (2)
  1. KESIMPTA [Suspect]
     Active Substance: OFATUMUMAB
     Indication: Foetal exposure during pregnancy
     Dosage: MATERNAL EXPOSURE DURING PREGNANCY: 20 MG, QMO
     Route: 064
     Dates: start: 202208, end: 20221202
  2. KESIMPTA [Suspect]
     Active Substance: OFATUMUMAB
     Dosage: MATERNAL EXPOSURE DURING PREGNANCY: 20 MG, QMO
     Route: 064
     Dates: start: 202303, end: 202308

REACTIONS (3)
  - Congenital musculoskeletal disorder [Not Recovered/Not Resolved]
  - Hand deformity [Not Recovered/Not Resolved]
  - Foetal exposure during pregnancy [Recovered/Resolved]

NARRATIVE: CASE EVENT DATE: 20240523
